FAERS Safety Report 6642675-2 (Version None)
Quarter: 2010Q1

REPORT INFORMATION
  Report Type: 
  Country: None (occurrence: None)
  Receive Date: 20100316
  Receipt Date: 20100305
  Transmission Date: 20100710
  Serious: Yes (Life-Threatening, Other)
  Sender: FDA-Public Use
  Company Number: 2010AL001426

PATIENT
  Age: 65 Year
  Sex: Male

DRUGS (9)
  1. LIDOCAINE HYDROCHLORIDE 2% [Suspect]
     Indication: RHEUMATOID ARTHRITIS
     Dosage: 1 PCT;X1;IA
     Route: 014
     Dates: start: 20100216, end: 20100216
  2. DEPO-MEDROL [Concomitant]
  3. METHOTREXATE [Concomitant]
  4. BISOPROLOL [Concomitant]
  5. MONOMIL XL [Concomitant]
  6. RABEPRAZOLE SODIUM [Concomitant]
  7. STATIN NOS [Concomitant]
  8. FOLIC ACID [Concomitant]
  9. EZETIMIBE [Concomitant]

REACTIONS (2)
  - ABDOMINAL PAIN [None]
  - ANAPHYLACTIC REACTION [None]
